FAERS Safety Report 9301701 (Version 1)
Quarter: 2013Q2

REPORT INFORMATION
  Report Type: Spontaneous
  Country: US (occurrence: US)
  Receive Date: 20130521
  Receipt Date: 20130521
  Transmission Date: 20140414
  Serious: Yes (Hospitalization)
  Sender: FDA-Public Use
  Company Number: US-MYLANLABS-2013S1010303

PATIENT
  Age: 68 Year
  Sex: Male

DRUGS (15)
  1. FUROSEMIDE [Suspect]
     Dosage: INTERMITTENT DOSES
     Route: 065
  2. FUROSEMIDE [Suspect]
     Dosage: 40-80MG TWICE DAILY
     Route: 042
  3. FUROSEMIDE [Suspect]
     Route: 042
  4. GENTAMICIN [Concomitant]
     Route: 065
  5. ASPIRIN [Concomitant]
     Route: 065
  6. HEPARIN [Concomitant]
     Route: 042
  7. DUOCID                             /00892601/ [Concomitant]
     Route: 065
  8. POTASSIUM CHLORIDE [Concomitant]
     Route: 065
  9. LISINOPRIL [Concomitant]
     Dosage: 20MG DAILY
     Route: 065
  10. METOPROLOL TARTRATE [Concomitant]
     Route: 065
  11. NITROGLYCERIN [Concomitant]
     Route: 062
  12. SIMVASTATIN [Concomitant]
     Route: 065
  13. MORPHINE [Concomitant]
     Route: 065
  14. OMEPRAZOLE [Concomitant]
     Route: 065
  15. TAMSULOSIN [Concomitant]
     Route: 065

REACTIONS (2)
  - Metabolic alkalosis [Recovering/Resolving]
  - Hypokalaemia [Recovering/Resolving]
